FAERS Safety Report 10080696 (Version 1)
Quarter: 2014Q2

REPORT INFORMATION
  Report Type: Spontaneous
  Country: GB (occurrence: None)
  Receive Date: 20140414
  Receipt Date: 20140414
  Transmission Date: 20141212
  Serious: Yes (Life-Threatening, Hospitalization)
  Sender: FDA-Public Use
  Company Number: AUR-APL-2014-04155

PATIENT
  Sex: Male

DRUGS (3)
  1. NAPROXEN (NAPROXEN) [Suspect]
     Indication: PRODUCT USED FOR UNKNOWN INDICATION
     Dosage: 1000 MG (500 MG, 2 IN 1 D)
     Route: 048
  2. PARACETAMOL [Suspect]
     Indication: PRODUCT USED FOR UNKNOWN INDICATION
     Dosage: 4 GM (1 GM, 4 IN 1 D)
     Route: 048
  3. AMPHETAMINE (AMFETAMINE) (AMFETAMINE) [Suspect]

REACTIONS (6)
  - Abdominal pain [None]
  - Cardiac arrest [None]
  - Circulatory collapse [None]
  - Multi-organ failure [None]
  - Blood alkaline phosphatase increased [None]
  - Alanine aminotransferase increased [None]
